FAERS Safety Report 14727429 (Version 1)
Quarter: 2018Q2

REPORT INFORMATION
  Report Type: Spontaneous
  Country: US (occurrence: US)
  Receive Date: 20180402
  Receipt Date: 20180402
  Transmission Date: 20180711
  Serious: Yes (Hospitalization)
  Sender: FDA-Public Use
  Company Number: None

PATIENT
  Sex: Female

DRUGS (2)
  1. NTG ANTI RESIDUE SHAMPOO (NEUTROGENA ANTI-RESIDUE) SHAMPOO [Suspect]
     Active Substance: COSMETICS
     Indication: PRODUCT USED FOR UNKNOWN INDICATION
     Route: 061
  2. NTG ACNE CLEANSER UNSPECIFIED (NTG ACNE CLEANSER UNSPECIFIED USA) UNSP [Suspect]
     Active Substance: BENZOYL PEROXIDE OR SALICYLIC ACID
     Indication: PRODUCT USED FOR UNKNOWN INDICATION
     Route: 061

REACTIONS (3)
  - Rash [None]
  - Lip swelling [None]
  - Eye swelling [None]
